FAERS Safety Report 14914644 (Version 1)
Quarter: 2018Q2

REPORT INFORMATION
  Report Type: Spontaneous
  Country: US (occurrence: US)
  Receive Date: 20180518
  Receipt Date: 20180518
  Transmission Date: 20180711
  Serious: No
  Sender: FDA-Public Use
  Company Number: US-JAZZ-2018-US-006462

PATIENT

DRUGS (1)
  1. XYREM [Suspect]
     Active Substance: SODIUM OXYBATE
     Indication: MATERNAL EXPOSURE TIMING UNSPECIFIED
     Dosage: UNKNOWN DOSE
     Route: 063

REACTIONS (1)
  - Exposure via breast milk [Unknown]
